FAERS Safety Report 22245032 (Version 6)
Quarter: 2024Q1

REPORT INFORMATION
  Report Type: Report from Study
  Country: US (occurrence: US)
  Receive Date: 20230424
  Receipt Date: 20240213
  Transmission Date: 20240410
  Serious: Yes (Hospitalization, Other)
  Sender: FDA-Public Use
  Company Number: US-ABBVIE-4737268

PATIENT
  Sex: Female

DRUGS (3)
  1. RINVOQ [Suspect]
     Active Substance: UPADACITINIB
     Indication: Dermatitis atopic
     Dosage: FORM STRENGTH:15 MILLIGRAMS?LAST ADMIN DATE: 2023
     Route: 048
     Dates: start: 20230227
  2. RINVOQ [Suspect]
     Active Substance: UPADACITINIB
     Indication: Dermatitis atopic
     Dosage: FORM STRENGTH:15 MILLIGRAMS
     Route: 048
     Dates: start: 20230227, end: 202401
  3. RINVOQ [Suspect]
     Active Substance: UPADACITINIB
     Indication: Dermatitis atopic
     Dosage: FORM STRENGTH: 15 MILLIGRAM
     Route: 048

REACTIONS (20)
  - Pneumonia [Unknown]
  - Allergic sinusitis [Unknown]
  - Facial paralysis [Recovered/Resolved]
  - Aphonia [Not Recovered/Not Resolved]
  - Gait disturbance [Recovered/Resolved]
  - Hyperhidrosis [Unknown]
  - Transient ischaemic attack [Recovered/Resolved]
  - Transient ischaemic attack [Unknown]
  - Upper-airway cough syndrome [Not Recovered/Not Resolved]
  - Pain in extremity [Recovering/Resolving]
  - Eczema [Not Recovered/Not Resolved]
  - Hypoaesthesia [Unknown]
  - Limb discomfort [Unknown]
  - Pain in extremity [Not Recovered/Not Resolved]
  - Dermatitis atopic [Unknown]
  - Muscular weakness [Unknown]
  - Feeling abnormal [Recovered/Resolved]
  - Dry skin [Unknown]
  - Skin laceration [Unknown]
  - Rash [Unknown]

NARRATIVE: CASE EVENT DATE: 20230101
